FAERS Safety Report 15768726 (Version 6)
Quarter: 2019Q4

REPORT INFORMATION
  Report Type: Spontaneous
  Country: US (occurrence: US)
  Receive Date: 20181228
  Receipt Date: 20191219
  Transmission Date: 20200122
  Serious: Yes (Other)
  Sender: FDA-Public Use
  Company Number: US-BRISTOL-MYERS SQUIBB COMPANY-BMS-2018-119028

PATIENT
  Age: 69 Year
  Sex: Female

DRUGS (1)
  1. ORENCIA [Suspect]
     Active Substance: ABATACEPT
     Indication: PRODUCT USED FOR UNKNOWN INDICATION
     Dosage: 125 MILLIGRAM, QWK
     Route: 058

REACTIONS (10)
  - Dyspnoea [Unknown]
  - Pain in extremity [Unknown]
  - Vomiting [Unknown]
  - Drug ineffective [Unknown]
  - Cough [Unknown]
  - Face injury [Unknown]
  - Urinary tract infection [Unknown]
  - Fall [Unknown]
  - Choking [Unknown]
  - Malaise [Unknown]

NARRATIVE: CASE EVENT DATE: 20190120
